FAERS Safety Report 4672997-6 (Version None)
Quarter: 2005Q2

REPORT INFORMATION
  Report Type: 
  Country: None (occurrence: None)
  Receive Date: 20050524
  Receipt Date: 20050506
  Transmission Date: 20051028
  Serious: Yes (Hospitalization)
  Sender: FDA-Public Use
  Company Number: CIO05006843

PATIENT
  Age: 74 Year
  Sex: Female
  Weight: 56.7 kg

DRUGS (4)
  1. VICKS INHALER (BORNYL ACETATE .21MG, CAMPHOR 57.97MG, LEVMETAMFETAMINE [Suspect]
     Indication: RHINORRHOEA
     Dosage: 2 INHAL, 1/DAY FOR 1 DAY, INTRANASAL
     Route: 045
     Dates: start: 20010422, end: 20010422
  2. ZESTRIL [Concomitant]
  3. LIPITOR [Concomitant]
  4. MIACALCIN [Concomitant]

REACTIONS (17)
  - ACTIVATED PARTIAL THROMBOPLASTIN TIME PROLONGED [None]
  - ANAEMIA [None]
  - ARTERIOSPASM CORONARY [None]
  - CARDIOMYOPATHY [None]
  - CORONARY ARTERY DISEASE [None]
  - DRUG ADMINISTRATION ERROR [None]
  - DRUG HYPERSENSITIVITY [None]
  - ENDOCARDIAL DISEASE [None]
  - FEELING ABNORMAL [None]
  - HYPERTENSION [None]
  - INTRACARDIAC THROMBUS [None]
  - MYOCARDIAL INFARCTION [None]
  - MYOCARDIAL ISCHAEMIA [None]
  - PERICARDITIS [None]
  - PROTHROMBIN TIME PROLONGED [None]
  - THROMBOLYSIS [None]
  - TRICUSPID VALVE INCOMPETENCE [None]
